FAERS Safety Report 15110742 (Version 2)
Quarter: 2018Q3

REPORT INFORMATION
  Report Type: Report from Study
  Country: MX (occurrence: MX)
  Receive Date: 20180705
  Receipt Date: 20180713
  Transmission Date: 20181010
  Serious: Yes (Hospitalization, Disabling, Other)
  Sender: FDA-Public Use
  Company Number: PHHY2018MX015648

PATIENT
  Age: 33 Year
  Sex: Female
  Weight: 92 kg

DRUGS (18)
  1. NIDESEF [Concomitant]
     Indication: SPINAL OPERATION
     Dosage: 1 DF, Q12H
     Route: 048
  2. GILENYA [Suspect]
     Active Substance: FINGOLIMOD HYDROCHLORIDE
     Indication: MULTIPLE SCLEROSIS
     Dosage: 0.5 MG, QD
     Route: 048
     Dates: start: 20130401, end: 20180102
  3. METICORTEN [Concomitant]
     Active Substance: PREDNISONE
     Indication: PAIN
     Dosage: 20 MG, QD (STOPPED 15 DAYS AGO)
     Route: 048
     Dates: start: 20171122
  4. LYRICA [Concomitant]
     Active Substance: PREGABALIN
     Indication: NERVOUS SYSTEM DISORDER
     Dosage: 150 MG, Q12H
     Route: 065
     Dates: start: 20171122
  5. TRANSTEC [Concomitant]
     Active Substance: BUPRENORPHINE
     Indication: PAIN
     Dosage: 1 DF, Q96H (EVERY 4 DAYS)
     Route: 062
     Dates: start: 20171122
  6. KETOROLAC [Concomitant]
     Active Substance: KETOROLAC\KETOROLAC TROMETHAMINE
     Indication: SPINAL DISORDER
     Dosage: UNK, WHEN HAVING STRONG PAIN
  7. ENSURE [Concomitant]
     Active Substance: AMINO ACIDS\DEXTROSE\ELECTROLYTES NOS\SOYBEAN OIL\VITAMINS
     Dosage: UNK
  8. SUKROL [Concomitant]
     Indication: PRODUCT USED FOR UNKNOWN INDICATION
     Dosage: 6 UNK, (3 TABLETS IN THE MORNING AND 3 TABLETS IN THE NIGHT)
     Route: 048
  9. GILENYA [Suspect]
     Active Substance: FINGOLIMOD HYDROCHLORIDE
     Dosage: 0.5 MG, QD
     Route: 048
     Dates: start: 20180629
  10. KETOROLAC [Concomitant]
     Active Substance: KETOROLAC\KETOROLAC TROMETHAMINE
     Indication: PAIN
     Dosage: 1 DF, Q12H
     Route: 048
     Dates: start: 20171122
  11. OMEGA 3 [Concomitant]
     Active Substance: OMEGA-3 FATTY ACIDS
     Indication: PRODUCT USED FOR UNKNOWN INDICATION
     Dosage: 2 DF, QD
     Route: 048
  12. GILENYA [Suspect]
     Active Substance: FINGOLIMOD HYDROCHLORIDE
     Dosage: 0.5 MG, Q72H
     Route: 048
     Dates: start: 201801, end: 201803
  13. TAFITRAM [Concomitant]
     Indication: PAIN
     Dosage: 1 DF, Q12H
     Route: 048
     Dates: start: 20171122
  14. TEMGESIC [Concomitant]
     Active Substance: BUPRENORPHINE HYDROCHLORIDE
     Indication: PAIN
     Dosage: 1 ML, EVERY 8 DAYS DURING 1 MONTH
     Route: 030
     Dates: start: 20171122
  15. MULTI VITAMIN [Concomitant]
     Active Substance: VITAMINS
     Indication: PRODUCT USED FOR UNKNOWN INDICATION
     Dosage: 450 ML, QD
  16. ENSURE [Concomitant]
     Active Substance: AMINO ACIDS\DEXTROSE\ELECTROLYTES NOS\SOYBEAN OIL\VITAMINS
     Indication: VITAMIN SUPPLEMENTATION
     Dosage: 450 ML, QD
     Route: 048
  17. DOLO NEUROBION FORTE [Concomitant]
     Indication: PRODUCT USED FOR UNKNOWN INDICATION
     Dosage: 1 DF, QD
     Route: 048
  18. VITAMIN D [Concomitant]
     Active Substance: CHOLECALCIFEROL
     Indication: PRODUCT USED FOR UNKNOWN INDICATION
     Dosage: 1 DF, Q12H
     Route: 048

REACTIONS (8)
  - Intervertebral disc protrusion [Recovered/Resolved]
  - Prescribed underdose [Unknown]
  - Gait inability [Not Recovered/Not Resolved]
  - Urinary incontinence [Unknown]
  - Procedural pain [Unknown]
  - Spinal disorder [Recovering/Resolving]
  - Muscular weakness [Unknown]
  - Multiple sclerosis relapse [Not Recovered/Not Resolved]

NARRATIVE: CASE EVENT DATE: 201304
